FAERS Safety Report 9338673 (Version 1)
Quarter: 2013Q2

REPORT INFORMATION
  Report Type: Spontaneous
  Country: US (occurrence: None)
  Receive Date: 20130605
  Receipt Date: 20130605
  Transmission Date: 20140414
  Serious: Yes (Hospitalization)
  Sender: FDA-Public Use
  Company Number: None

PATIENT
  Age: 46 Year
  Sex: Female
  Weight: 58.24 kg

DRUGS (2)
  1. SURAMIN [Suspect]
     Route: 041
     Dates: start: 20130516, end: 20130516
  2. DOCETAXEL [Suspect]
     Route: 041
     Dates: start: 20130516, end: 20130516

REACTIONS (5)
  - International normalised ratio increased [None]
  - Headache [None]
  - Nausea [None]
  - Vomiting [None]
  - Haemorrhage intracranial [None]
